FAERS Safety Report 9441555 (Version 1)
Quarter: 2013Q3

REPORT INFORMATION
  Report Type: Report from Study
  Country: DE (occurrence: DE)
  Receive Date: 20130805
  Receipt Date: 20130805
  Transmission Date: 20140515
  Serious: Yes (Hospitalization)
  Sender: FDA-Public Use
  Company Number: DE-TEVA-421382GER

PATIENT
  Age: 39 Year
  Sex: Female

DRUGS (8)
  1. MYOCET [Suspect]
     Indication: BREAST CANCER
     Route: 042
     Dates: start: 20120620
  2. PACLITAXEL [Interacting]
     Indication: BREAST CANCER
     Route: 042
     Dates: start: 20120620
  3. TRASTUZUMAB [Suspect]
     Indication: BREAST CANCER
     Route: 042
     Dates: start: 20120619
  4. LAPATINIB [Suspect]
     Indication: BREAST CANCER
     Dosage: 750 MILLIGRAM DAILY;
     Route: 048
     Dates: start: 20120620
  5. KEVATRIL [Concomitant]
     Dosage: 1 MILLIGRAM DAILY;
  6. FENISTIL [Concomitant]
  7. RANITIC [Concomitant]
  8. DEXAMETHASONE [Concomitant]

REACTIONS (2)
  - Pyrexia [Recovered/Resolved]
  - Drug interaction [Recovered/Resolved]
